FAERS Safety Report 13748679 (Version 2)
Quarter: 2017Q4

REPORT INFORMATION
  Report Type: Report from Study
  Country: JP (occurrence: JP)
  Receive Date: 20170713
  Receipt Date: 20171023
  Transmission Date: 20180320
  Serious: Yes (Death, Hospitalization)
  Sender: FDA-Public Use
  Company Number: JP-ACTELION-A-CH2017-152347

PATIENT
  Age: 88 Year
  Sex: Female

DRUGS (11)
  1. OPSUMIT [Suspect]
     Active Substance: MACITENTAN
     Dosage: 2.5 MG, QD
     Route: 048
     Dates: start: 20160219, end: 20160227
  2. HERBESSER [Concomitant]
     Active Substance: DILTIAZEM HYDROCHLORIDE
  3. NIFEDIPINE. [Concomitant]
     Active Substance: NIFEDIPINE
  4. MEVALOTIN [Concomitant]
     Active Substance: PRAVASTATIN SODIUM
  5. OXYGEN. [Concomitant]
     Active Substance: OXYGEN
  6. CARDENALIN [Concomitant]
     Active Substance: DOXAZOSIN MESYLATE
  7. PANALDINE [Concomitant]
     Active Substance: TICLOPIDINE HYDROCHLORIDE
  8. SAMSCA [Concomitant]
     Active Substance: TOLVAPTAN
  9. OPSUMIT [Suspect]
     Active Substance: MACITENTAN
     Indication: PULMONARY ARTERIAL HYPERTENSION
     Dosage: 5 MG, QD
     Route: 048
     Dates: start: 20160227, end: 20160326
  10. REVATIO [Concomitant]
     Active Substance: SILDENAFIL CITRATE
  11. CANDESARTAN. [Concomitant]
     Active Substance: CANDESARTAN

REACTIONS (1)
  - Pulmonary hypertension [Fatal]

NARRATIVE: CASE EVENT DATE: 20160321
